FAERS Safety Report 6146999-7 (Version None)
Quarter: 2009Q2

REPORT INFORMATION
  Report Type: 
  Country: None (occurrence: None)
  Receive Date: 20090403
  Receipt Date: 20081003
  Transmission Date: 20091009
  Serious: Yes (Life-Threatening, Hospitalization)
  Sender: FDA-Public Use
  Company Number: DSA_32480_2008

PATIENT
  Age: 61 Year
  Sex: Female

DRUGS (11)
  1. ENALAPRIL MALEATE AND HYDROCHLOROTHIAZIDE [Suspect]
     Indication: HYPERTENSION
     Dosage: DF ORAL
     Route: 048
     Dates: end: 20080717
  2. COLCHICINE + OPIUM + TIEMONIUM [Suspect]
     Dosage: DF ORAL
     Route: 048
     Dates: start: 20080711, end: 20080717
  3. KETOPROFEN [Suspect]
     Indication: DRUG USE FOR UNKNOWN INDICATION
     Dosage: DF
  4. DIACEREIN [Concomitant]
  5. POTASSIUM CHLORIDE [Concomitant]
  6. HYDROXYZINE HYDROCHLORIDE [Concomitant]
  7. FUROSEMIDE [Concomitant]
  8. PREGABALIN [Concomitant]
  9. URAPIDIL [Concomitant]
  10. TRAMADOL HCL [Concomitant]
  11. RABEPRAZOLE SODIUM [Concomitant]

REACTIONS (3)
  - DIARRHOEA [None]
  - HYPERKALAEMIA [None]
  - RENAL FAILURE ACUTE [None]
